FAERS Safety Report 7366209-2 (Version None)
Quarter: 2011Q1

REPORT INFORMATION
  Report Type: 
  Country: None (occurrence: None)
  Receive Date: 20110322
  Receipt Date: 20110224
  Transmission Date: 20110831
  Serious: No
  Sender: FDA-Public Use
  Company Number: US-B.I. PHARMACEUTICALS,INC./RIDGEFIELD-2011-BP-06765BP

PATIENT
  Sex: Male

DRUGS (12)
  1. DEPAKOTE [Concomitant]
     Indication: CONVULSION
  2. CARVEDILOL [Concomitant]
     Indication: HYPERTENSION
  3. FLOMAX [Concomitant]
     Indication: PROSTATIC DISORDER
     Dates: start: 20100801
  4. LIPITOR [Concomitant]
     Indication: BLOOD CHOLESTEROL INCREASED
     Dates: start: 20100801
  5. GLIMPERIDE [Concomitant]
     Indication: DIABETES MELLITUS
  6. ASPIRIN [Concomitant]
     Indication: PROPHYLAXIS
  7. LASIX [Concomitant]
     Indication: FLUID RETENTION
  8. SPIRIVA [Suspect]
     Indication: CHRONIC OBSTRUCTIVE PULMONARY DISEASE
     Dosage: 18 MCG
     Route: 055
     Dates: start: 20110221
  9. POTASSIUM CHLORIDE [Concomitant]
     Indication: SUPPLEMENTATION THERAPY
  10. PROAIR HFA [Concomitant]
     Indication: CHRONIC OBSTRUCTIVE PULMONARY DISEASE
  11. DIOVAN [Concomitant]
     Indication: HYPERTENSION
  12. WARFARIN [Concomitant]
     Indication: ATRIAL FIBRILLATION
     Dates: start: 20100801

REACTIONS (4)
  - VISION BLURRED [None]
  - HEART RATE INCREASED [None]
  - FEELING ABNORMAL [None]
  - RHINORRHOEA [None]
